FAERS Safety Report 5412715-7 (Version None)
Quarter: 2007Q3

REPORT INFORMATION
  Report Type: 
  Country: None (occurrence: None)
  Receive Date: 20070813
  Receipt Date: 20070802
  Transmission Date: 20080115
  Serious: Yes (Hospitalization)
  Sender: FDA-Public Use
  Company Number: US-SHR-US-2007-023528

PATIENT
  Age: 55 Year
  Sex: Female
  Weight: 63.039 kg

DRUGS (3)
  1. BETASERON [Suspect]
     Dosage: 8 MIU, EVERY 2D
     Route: 058
     Dates: start: 20040727
  2. PREMARIN [Concomitant]
     Dosage: .9 /DAILY
     Route: 048
     Dates: start: 19830101
  3. LYRICA [Concomitant]
     Dosage: 50 MG, 3X/DAY
     Route: 048
     Dates: start: 20061001, end: 20070701

REACTIONS (6)
  - BURNING SENSATION [None]
  - ENDOMETRIOSIS [None]
  - HYPOAESTHESIA [None]
  - MULTIPLE SCLEROSIS [None]
  - PSORIASIS [None]
  - STRESS [None]
